FAERS Safety Report 15115139 (Version 1)
Quarter: 2018Q3

REPORT INFORMATION
  Report Type: Spontaneous
  Country: CZ (occurrence: CZ)
  Receive Date: 20180706
  Receipt Date: 20180706
  Transmission Date: 20181010
  Serious: Yes (Death, Hospitalization, Other)
  Sender: FDA-Public Use
  Company Number: CZ-BAYER-2018-121501

PATIENT
  Sex: Female

DRUGS (4)
  1. NEXAVAR [Suspect]
     Active Substance: SORAFENIB
     Indication: RENAL CELL CARCINOMA
     Dosage: 400 MG, BID
     Route: 048
     Dates: start: 20151129, end: 20160201
  2. NEXAVAR [Suspect]
     Active Substance: SORAFENIB
     Indication: RENAL CELL CARCINOMA
     Dosage: 400 MG, BID
     Route: 048
     Dates: start: 20160211, end: 201603
  3. NEXAVAR [Suspect]
     Active Substance: SORAFENIB
     Indication: RENAL CELL CARCINOMA
     Dosage: DAILY DOSE 600 MG
     Route: 048
     Dates: start: 201603, end: 20160707
  4. NEXAVAR [Suspect]
     Active Substance: SORAFENIB
     Indication: RENAL CELL CARCINOMA
     Dosage: 400 MG, BID
     Route: 048
     Dates: start: 20151007, end: 201511

REACTIONS (16)
  - Transaminases increased [None]
  - Hypokalaemia [None]
  - Metastases to liver [None]
  - Skin ulcer [None]
  - Pain in extremity [Not Recovered/Not Resolved]
  - Vomiting [Recovered/Resolved]
  - Fatigue [None]
  - Dry skin [None]
  - Gamma-glutamyltransferase increased [None]
  - Glossodynia [None]
  - Cancer pain [Recovering/Resolving]
  - Vomiting [Recovering/Resolving]
  - Palmar-plantar erythrodysaesthesia syndrome [Not Recovered/Not Resolved]
  - General physical health deterioration [Recovering/Resolving]
  - Renal cell carcinoma [Fatal]
  - Hypothyroidism [None]

NARRATIVE: CASE EVENT DATE: 20151222
